FAERS Safety Report 5409369-2 (Version None)
Quarter: 2007Q3

REPORT INFORMATION
  Report Type: 
  Country: None (occurrence: None)
  Receive Date: 20070807
  Receipt Date: 20070801
  Transmission Date: 20080115
  Serious: Yes (Hospitalization)
  Sender: FDA-Public Use
  Company Number: CIP07001231

PATIENT
  Age: 70 Year
  Sex: Female

DRUGS (3)
  1. ACTONEL [Suspect]
     Dosage: 35 MG ONCE WEEKLY, ORAL
     Route: 048
     Dates: start: 20070101, end: 20070101
  2. ACTONEL [Suspect]
     Dosage: 35 MG ONCE WEEKLY, ORAL
     Route: 048
     Dates: start: 20070731
  3. THYROID THERAPY [Concomitant]

REACTIONS (4)
  - BONE PAIN [None]
  - CHEST PAIN [None]
  - HEART RATE ABNORMAL [None]
  - NAUSEA [None]
